FAERS Safety Report 7581350-7 (Version None)
Quarter: 2011Q2

REPORT INFORMATION
  Report Type: 
  Country: None (occurrence: None)
  Receive Date: 20110629
  Receipt Date: 20110629
  Transmission Date: 20111010
  Serious: Yes (Other)
  Sender: FDA-Public Use
  Company Number: JP-PFIZER INC-2011137733

PATIENT
  Age: 75 Year
  Sex: Female

DRUGS (4)
  1. ZOLOFT [Suspect]
     Indication: MAJOR DEPRESSION
     Dosage: 100 MG/DAY
     Route: 048
     Dates: start: 20080101
  2. MAPROTILINE [Suspect]
     Indication: MAJOR DEPRESSION
     Dosage: 50-100 MG/DAY
  3. RISPERIDONE [Concomitant]
     Dosage: 7 MG/DAY
  4. VALPROIC ACID [Concomitant]
     Dosage: 400-800 MG/DAY

REACTIONS (1)
  - BIPOLAR II DISORDER [None]
